FAERS Safety Report 8620359 (Version 4)
Quarter: 2020Q3

REPORT INFORMATION
  Report Type: Spontaneous
  Country: JP (occurrence: None)
  Receive Date: 20120531
  Receipt Date: 20120705
  Transmission Date: 20201105
  Serious: Yes (Hospitalization, Other)
  Sender: FDA-Public Use
  Company Number: 2012SP027881

PATIENT
  Age: 57 Year
  Sex: Male
  Weight: 66.5 kg

DRUGS (19)
  1. RIBAVIRIN. [Suspect]
     Active Substance: RIBAVIRIN
     Indication: HEPATITIS C
     Dosage: 800 MG;QD;UNK
     Dates: start: 20111006
  2. OXAROL [Concomitant]
  3. GASTER [Concomitant]
     Active Substance: FAMOTIDINE
  4. VANIPREVIR. [Suspect]
     Active Substance: VANIPREVIR
     Indication: HEPATITIS C
     Dosage: 300 MG;BID;UNK
     Dates: start: 20111006
  5. NORVASC [Concomitant]
     Active Substance: AMLODIPINE BESYLATE
  6. METHADERM [Concomitant]
  7. ADONA (CARBAZOCHROME SODIUM SULFONATE) [Concomitant]
     Active Substance: CARBAZOCHROME SODIUM SULFONATE
  8. LOXONIN /00890702/ [Concomitant]
  9. TRANSAMIN [Concomitant]
     Active Substance: TRANEXAMIC ACID
  10. UREPEARL [Concomitant]
  11. SOLITA [Concomitant]
  12. PEGINTERFERON ALFA?2B [Suspect]
     Active Substance: PEGINTERFERON ALFA-2B
     Indication: HEPATITIS C
     Dosage: 100 MCG;QW;UNK
     Dates: start: 20111006
  13. OLOPATADINE HYDROCHLORIDE. [Concomitant]
     Active Substance: OLOPATADINE HYDROCHLORIDE
  14. MICARDIS [Concomitant]
     Active Substance: TELMISARTAN
  15. METHADERM [Concomitant]
  16. OXAROL [Concomitant]
  17. ATROPINE. [Concomitant]
     Active Substance: ATROPINE
  18. PENTAZOCINE LACTATE [Concomitant]
     Active Substance: PENTAZOCINE LACTATE
  19. CEFAZOLIN SODIUM. [Concomitant]
     Active Substance: CEFAZOLIN SODIUM

REACTIONS (1)
  - Hepatic cancer [None]

NARRATIVE: CASE EVENT DATE: 20120331
